FAERS Safety Report 6918504-6 (Version None)
Quarter: 2010Q3

REPORT INFORMATION
  Report Type: 
  Country: None (occurrence: None)
  Receive Date: 20100811
  Receipt Date: 20100802
  Transmission Date: 20110219
  Serious: Yes (Hospitalization)
  Sender: FDA-Public Use
  Company Number: FR-ASTRAZENECA-2010SE36867

PATIENT
  Age: 26980 Day
  Sex: Male

DRUGS (4)
  1. NEXIUM [Suspect]
     Indication: PROPHYLAXIS
     Route: 048
     Dates: start: 20100705, end: 20100709
  2. ATENOLOL [Concomitant]
     Indication: HYPERTENSION
     Route: 048
  3. ARANESP [Concomitant]
     Indication: ANAEMIA
     Route: 058
  4. CORTANCYL [Concomitant]
     Indication: RENAL IMPAIRMENT
     Route: 048
     Dates: start: 20100705

REACTIONS (3)
  - ERYTHEMA [None]
  - TOXIC SKIN ERUPTION [None]
  - URTICARIA [None]
